FAERS Safety Report 9836687 (Version 1)
Quarter: 2014Q1

REPORT INFORMATION
  Report Type: Spontaneous
  Country: US (occurrence: US)
  Receive Date: 20140123
  Receipt Date: 20140123
  Transmission Date: 20141002
  Serious: No
  Sender: FDA-Public Use
  Company Number: US-TEVA-457919USA

PATIENT
  Sex: Female

DRUGS (1)
  1. TREANDA [Suspect]
     Dates: start: 201310

REACTIONS (1)
  - Blood count abnormal [Not Recovered/Not Resolved]
